FAERS Safety Report 20895734 (Version 9)
Quarter: 2023Q4

REPORT INFORMATION
  Report Type: Report from Study
  Country: CL (occurrence: CL)
  Receive Date: 20220531
  Receipt Date: 20231029
  Transmission Date: 20240110
  Serious: Yes (Disabling, Other)
  Sender: FDA-Public Use
  Company Number: CL-NOVARTISPH-NVSC2022CL097027

PATIENT
  Age: 45 Year
  Sex: Female
  Weight: 60 kg

DRUGS (13)
  1. COSENTYX [Suspect]
     Active Substance: SECUKINUMAB
     Indication: Psoriatic arthropathy
     Dosage: 300 MG, QMO
     Route: 058
     Dates: start: 20211222
  2. COSENTYX [Suspect]
     Active Substance: SECUKINUMAB
     Dosage: 2 DOSAGE FORM
     Route: 065
     Dates: start: 202112
  3. COSENTYX [Suspect]
     Active Substance: SECUKINUMAB
     Dosage: 300 MG
     Route: 065
     Dates: start: 20220420
  4. COSENTYX [Suspect]
     Active Substance: SECUKINUMAB
     Dosage: 2 DOSAGE FORM, QMO
     Route: 058
  5. COSENTYX [Suspect]
     Active Substance: SECUKINUMAB
     Dosage: 300 MG, QMO
     Route: 058
  6. COSENTYX [Suspect]
     Active Substance: SECUKINUMAB
     Dosage: 300 MG, QMO
     Route: 065
     Dates: start: 20220618
  7. COSENTYX [Suspect]
     Active Substance: SECUKINUMAB
     Dosage: 1 DOSAGE FORM (1 INJECTOR)
     Route: 065
     Dates: start: 202302
  8. COSENTYX [Suspect]
     Active Substance: SECUKINUMAB
     Dosage: 150 MG, QMO
     Route: 058
     Dates: start: 202304, end: 202306
  9. COSENTYX [Suspect]
     Active Substance: SECUKINUMAB
     Dosage: 300 MG, QMO
     Route: 058
     Dates: start: 20230709
  10. COSENTYX [Suspect]
     Active Substance: SECUKINUMAB
     Dosage: 2 DOSAGE FORM, QMO
     Route: 065
  11. COSENTYX [Suspect]
     Active Substance: SECUKINUMAB
     Dosage: 300 MG, QMO
     Route: 058
     Dates: start: 20230903
  12. COSENTYX [Suspect]
     Active Substance: SECUKINUMAB
     Dosage: 300 MG
     Route: 058
     Dates: start: 20231001
  13. PREGABALIN [Suspect]
     Active Substance: PREGABALIN
     Indication: Product used for unknown indication
     Dosage: 75 MG, Q24H
     Route: 065

REACTIONS (22)
  - Arthralgia [Not Recovered/Not Resolved]
  - Arthritis [Not Recovered/Not Resolved]
  - Joint swelling [Not Recovered/Not Resolved]
  - Immunosuppression [Unknown]
  - Injection site haematoma [Recovered/Resolved]
  - Injection site rash [Recovered/Resolved]
  - Injection site haematoma [Unknown]
  - Dermatitis allergic [Unknown]
  - Arthralgia [Recovered/Resolved]
  - Pain [Unknown]
  - Neck pain [Unknown]
  - Pain in extremity [Unknown]
  - Gait inability [Unknown]
  - Malaise [Unknown]
  - Erythema [Unknown]
  - Synovitis [Unknown]
  - Patellofemoral pain syndrome [Unknown]
  - Tendon disorder [Unknown]
  - Ligament sprain [Unknown]
  - Hypersensitivity [Not Recovered/Not Resolved]
  - Pruritus [Unknown]
  - Therapy non-responder [Unknown]

NARRATIVE: CASE EVENT DATE: 20220520
